FAERS Safety Report 4616331-6 (Version None)
Quarter: 2005Q1

REPORT INFORMATION
  Report Type: 
  Country: None (occurrence: None)
  Receive Date: 20050321
  Receipt Date: 20050309
  Transmission Date: 20050727
  Serious: Yes (Life-Threatening, Hospitalization, Other)
  Sender: FDA-Public Use
  Company Number: 2005012117

PATIENT
  Age: 45 Year
  Sex: Female
  Weight: 120.2032 kg

DRUGS (4)
  1. DETROL LA [Suspect]
     Indication: ILL-DEFINED DISORDER
     Dosage: 4 MG (4 MG, QD), ORAL
     Route: 048
     Dates: start: 20021101
  2. BEXTRA [Suspect]
     Indication: ILL-DEFINED DISORDER
  3. PREDNISONE [Suspect]
     Indication: ILL-DEFINED DISORDER
     Dosage: 200 MG (100 MG, BID), ORAL
     Route: 048
  4. OXYCODONE HYDROCHLORIDE (OXYCODONE HYDROCHLORIDE) [Concomitant]

REACTIONS (10)
  - ARTHRALGIA [None]
  - CONDITION AGGRAVATED [None]
  - DIABETES MELLITUS [None]
  - DIABETIC KETOACIDOSIS [None]
  - INCONTINENCE [None]
  - INSOMNIA [None]
  - KNEE OPERATION [None]
  - POLLAKIURIA [None]
  - RASH [None]
  - TREATMENT NONCOMPLIANCE [None]
